FAERS Safety Report 14651983 (Version 1)
Quarter: 2018Q1

REPORT INFORMATION
  Report Type: Spontaneous
  Country: US (occurrence: US)
  Receive Date: 20180317
  Receipt Date: 20180317
  Transmission Date: 20180509
  Serious: No
  Sender: FDA-Public Use
  Company Number: US-JNJFOC-20180239948

PATIENT
  Sex: Female

DRUGS (1)
  1. TYLENOL EXTRA STRENGTH [Suspect]
     Active Substance: ACETAMINOPHEN
     Indication: NECK PAIN
     Dosage: ONCE OR TWICE PER DAY (1 AT MORNING AND SOMETIMES ONE MORE AT LEAST AFTER 6 HOURS LATER)
     Route: 048

REACTIONS (1)
  - Incorrect dose administered [Unknown]
